FAERS Safety Report 5808200-0 (Version None)
Quarter: 2008Q3

REPORT INFORMATION
  Report Type: 
  Country: None (occurrence: None)
  Receive Date: 20080709
  Receipt Date: 20080630
  Transmission Date: 20090109
  Serious: Yes (Other)
  Sender: FDA-Public Use
  Company Number: CHPA2008US10885

PATIENT
  Sex: Female

DRUGS (1)
  1. MAALOX ANTIACID/ANTIGAS MAX STR MULTI SYMPTOM ((NCH) (MAGNESIUM HYDROX [Suspect]
     Indication: ABDOMINAL DISTENSION
     Dosage: ORAL
     Route: 048
     Dates: start: 20080628

REACTIONS (1)
  - HAEMATOCHEZIA [None]
